FAERS Safety Report 6177741-1 (Version None)
Quarter: 2009Q2

REPORT INFORMATION
  Report Type: 
  Country: None (occurrence: None)
  Receive Date: 20090504
  Receipt Date: 20090108
  Transmission Date: 20091009
  Serious: No
  Sender: FDA-Public Use
  Company Number: US-ALEXION-A200800436

PATIENT
  Sex: Female

DRUGS (10)
  1. SOLIRIS [Suspect]
     Indication: PAROXYSMAL NOCTURNAL HAEMOGLOBINURIA
     Dosage: 600 MG, QW
     Route: 042
     Dates: start: 20070628, end: 20070718
  2. SOLIRIS [Suspect]
     Dosage: 900 MG, Q2W
     Route: 042
     Dates: start: 20070725
  3. SOLIRIS [Suspect]
     Dosage: 900 MG, Q2W TO QM
     Route: 042
  4. SYNTHROID [Concomitant]
  5. LIPITOR [Concomitant]
  6. METOPROLOL TARTRATE [Concomitant]
  7. ESOMEPRAZOLE [Concomitant]
  8. ASPIRIN [Concomitant]
  9. ACTONEL [Concomitant]
     Indication: OSTEOPOROSIS
     Dosage: UNK, QM
     Route: 048
  10. FOLIC ACID [Concomitant]
     Dosage: UNK

REACTIONS (2)
  - CHROMATURIA [None]
  - HEADACHE [None]
